FAERS Safety Report 11338615 (Version 1)
Quarter: 2015Q3

REPORT INFORMATION
  Report Type: Spontaneous
  Country: US (occurrence: US)
  Receive Date: 20150803
  Receipt Date: 20150803
  Transmission Date: 20151125
  Serious: No
  Sender: FDA-Public Use
  Company Number: US-ELI_LILLY_AND_COMPANY-US200710005476

PATIENT
  Age: 58 Year
  Sex: Male
  Weight: 68.03 kg

DRUGS (9)
  1. IBUPROFEN. [Concomitant]
     Active Substance: IBUPROFEN
     Indication: INFLAMMATION
     Dosage: UNK, AS NEEDED
  2. STRATTERA [Suspect]
     Active Substance: ATOMOXETINE HYDROCHLORIDE
     Dosage: UNK MG, UNK
  3. STRATTERA [Suspect]
     Active Substance: ATOMOXETINE HYDROCHLORIDE
     Indication: ATTENTION DEFICIT/HYPERACTIVITY DISORDER
     Dosage: 10 MG, UNK
     Dates: start: 2007, end: 2007
  4. STRATTERA [Suspect]
     Active Substance: ATOMOXETINE HYDROCHLORIDE
     Dosage: 60 MG, DAILY (1/D)
     Dates: start: 2007
  5. STRATTERA [Suspect]
     Active Substance: ATOMOXETINE HYDROCHLORIDE
     Dosage: 25 MG, UNK
     Dates: start: 2007, end: 2007
  6. FISH OIL [Concomitant]
     Active Substance: FISH OIL
     Dosage: UNK, EACH EVENING
  7. STRATTERA [Suspect]
     Active Substance: ATOMOXETINE HYDROCHLORIDE
     Dosage: 25 MG, 2/D
     Dates: start: 2007, end: 2007
  8. ANTIVERT [Concomitant]
     Active Substance: MECLIZINE HYDROCHLORIDE
  9. MVI [Concomitant]
     Active Substance: VITAMINS

REACTIONS (9)
  - Nausea [Not Recovered/Not Resolved]
  - Constipation [Recovering/Resolving]
  - Dizziness [Not Recovered/Not Resolved]
  - Eye movement disorder [Not Recovered/Not Resolved]
  - Dysuria [Recovered/Resolved]
  - Sleep disorder [Recovered/Resolved]
  - Decreased appetite [Not Recovered/Not Resolved]
  - Mood swings [Recovering/Resolving]
  - Vertigo positional [Unknown]

NARRATIVE: CASE EVENT DATE: 2007
